FAERS Safety Report 8533130-3 (Version None)
Quarter: 2012Q3

REPORT INFORMATION
  Report Type: 
  Country: None (occurrence: None)
  Receive Date: 20120724
  Receipt Date: 20120716
  Transmission Date: 20120928
  Serious: Yes (Other)
  Sender: FDA-Public Use
  Company Number: IL-JNJFOC-20120109542

PATIENT
  Age: 95 Year
  Sex: Female

DRUGS (3)
  1. GALANTAMINE HYDROBROMIDE [Suspect]
     Indication: PRODUCT USED FOR UNKNOWN INDICATION
     Route: 048
  2. GALANTAMINE HYDROBROMIDE [Suspect]
     Dosage: 1 WEEK
     Route: 048
  3. GALANTAMINE HYDROBROMIDE [Suspect]
     Route: 048

REACTIONS (3)
  - INCORRECT DOSE ADMINISTERED [None]
  - INTESTINAL MASS [None]
  - MUSCLE SPASMS [None]
